FAERS Safety Report 4489787-X (Version None)
Quarter: 2004Q4

REPORT INFORMATION
  Report Type: 
  Country: None (occurrence: None)
  Receive Date: 20041026
  Receipt Date: 20041007
  Transmission Date: 20050328
  Serious: Yes (Hospitalization, Other)
  Sender: FDA-Public Use
  Company Number: JP_041004696

PATIENT
  Age: 56 Year
  Sex: Male

DRUGS (1)
  1. ONCOVIN [Suspect]
     Indication: DIFFUSE LARGE B-CELL LYMPHOMA STAGE IV
     Dosage: 0.7 MG OTHER

REACTIONS (6)
  - DIALYSIS [None]
  - DIFFUSE LARGE B-CELL LYMPHOMA STAGE IV [None]
  - GENERAL PHYSICAL HEALTH DETERIORATION [None]
  - MALIGNANT NEOPLASM PROGRESSION [None]
  - RECURRENT CANCER [None]
  - RENAL FAILURE ACUTE [None]
